FAERS Safety Report 9394152 (Version 1)
Quarter: 2013Q3

REPORT INFORMATION
  Report Type: Spontaneous
  Country: GR (occurrence: GR)
  Receive Date: 20130710
  Receipt Date: 20130710
  Transmission Date: 20140515
  Serious: Yes (Hospitalization)
  Sender: FDA-Public Use
  Company Number: GR-ABBOTT-13X-066-1116051-00

PATIENT
  Age: 32 Year
  Sex: Female

DRUGS (1)
  1. KLARICID [Suspect]
     Indication: ACUTE TONSILLITIS

REACTIONS (2)
  - Peritonsillar abscess [Recovered/Resolved]
  - Drug ineffective [Recovered/Resolved]
